FAERS Safety Report 16476404 (Version 1)
Quarter: 2019Q2

REPORT INFORMATION
  Report Type: Spontaneous
  Country: US (occurrence: US)
  Receive Date: 20190626
  Receipt Date: 20190626
  Transmission Date: 20190711
  Serious: No
  Sender: FDA-Public Use
  Company Number: US-BEH-2019103307

PATIENT
  Age: 64 Year
  Sex: Female

DRUGS (20)
  1. AZELASTINE. [Concomitant]
     Active Substance: AZELASTINE HYDROCHLORIDE
     Dosage: UNK
     Route: 065
     Dates: start: 20180118
  2. MUCINEX [Concomitant]
     Active Substance: GUAIFENESIN
     Dosage: 600 MILLIGRAM
     Route: 065
     Dates: start: 20180102
  3. MAGNESIUM [Concomitant]
     Active Substance: MAGNESIUM
     Dosage: 300 MILLIGRAM
     Route: 065
     Dates: start: 20180118
  4. MONTELUKAST [Concomitant]
     Active Substance: MONTELUKAST SODIUM
     Dosage: 10 MILLIGRAM
     Route: 065
     Dates: start: 20180102
  5. MULTIVITAMINS [VITAMINS NOS] [Concomitant]
     Active Substance: VITAMINS
     Dosage: UNK UNK, QD
     Route: 065
     Dates: start: 20180118
  6. PROAIR HFA [Concomitant]
     Active Substance: ALBUTEROL SULFATE
     Dosage: UNK
     Route: 065
     Dates: start: 20180102
  7. MELATONIN [Concomitant]
     Active Substance: MELATONIN
     Dosage: 5 MILLIGRAM
     Route: 065
     Dates: start: 20180118
  8. SIMETHICONE (DIMETHICONE) [Concomitant]
     Active Substance: DIMETHICONE
     Dosage: 180 MILLIGRAM
     Route: 065
     Dates: start: 20180116
  9. LEVOCETIRIZINE DIHYDROCHLORIDE. [Concomitant]
     Active Substance: LEVOCETIRIZINE DIHYDROCHLORIDE
     Dosage: UNK
     Route: 065
     Dates: start: 20160102
  10. RESTASIS [Concomitant]
     Active Substance: CYCLOSPORINE
     Dosage: UNK
     Route: 065
     Dates: start: 20180102
  11. FLUTICASONE. [Concomitant]
     Active Substance: FLUTICASONE
     Dosage: 50 MICROGRAM
     Route: 065
     Dates: start: 20180116
  12. GABAPENTIN. [Concomitant]
     Active Substance: GABAPENTIN
     Dosage: 300 MILLIGRAM
     Route: 065
     Dates: start: 20160102
  13. ZYRTEC [Concomitant]
     Active Substance: CETIRIZINE HYDROCHLORIDE
     Dosage: 10 MILLIGRAM
     Route: 065
     Dates: start: 20180118
  14. ADVAIR HFA [Concomitant]
     Active Substance: FLUTICASONE PROPIONATE\SALMETEROL XINAFOATE
     Dosage: 250/50
     Route: 065
     Dates: start: 20180102
  15. ADVIL COLD AND SINUS [Concomitant]
     Active Substance: IBUPROFEN\PSEUDOEPHEDRINE HYDROCHLORIDE
     Dosage: UNK
     Route: 065
     Dates: start: 20180118
  16. CORTISONE ACETATE. [Concomitant]
     Active Substance: CORTISONE ACETATE
     Dosage: UNK
     Route: 065
     Dates: start: 20180102
  17. LOPERAMIDE [Concomitant]
     Active Substance: LOPERAMIDE
     Dosage: 2 MILLIGRAM
     Route: 065
     Dates: start: 20180118
  18. HIZENTRA [Suspect]
     Active Substance: HUMAN IMMUNOGLOBULIN G
     Indication: IMMUNODEFICIENCY COMMON VARIABLE
     Dosage: 10 GRAM, QW
     Route: 058
     Dates: start: 20180120
  19. ARMOUR THYROID [Concomitant]
     Active Substance: THYROID, PORCINE
     Dosage: 120 MILLIGRAM
     Route: 065
     Dates: start: 20180102
  20. CALCIUM [Concomitant]
     Active Substance: CALCIUM
     Dosage: 500 MILLIGRAM
     Route: 065
     Dates: start: 20180118

REACTIONS (1)
  - Drug hypersensitivity [Not Recovered/Not Resolved]
